FAERS Safety Report 5531855-5 (Version None)
Quarter: 2007Q4

REPORT INFORMATION
  Report Type: 
  Country: None (occurrence: None)
  Receive Date: 20071203
  Receipt Date: 20071121
  Transmission Date: 20080405
  Serious: Yes (Other)
  Sender: FDA-Public Use
  Company Number: US-ROCHE-533008

PATIENT
  Age: 51 Year
  Sex: Female
  Weight: 83.5 kg

DRUGS (5)
  1. CAPECITABINE [Suspect]
     Indication: BREAST CANCER
     Route: 065
     Dates: end: 20071115
  2. NISOLDIPINE [Concomitant]
  3. METOPROLOL TARTRATE [Concomitant]
  4. LISINOPRIL [Concomitant]
  5. HYDROCODONE BITARTRATE [Concomitant]
     Dosage: FREQUENCY REPORTED AS Q 4HRS, PRN.

REACTIONS (1)
  - RADIATION SKIN INJURY [None]
